FAERS Safety Report 9015405 (Version 1)
Quarter: 2013Q1

REPORT INFORMATION
  Report Type: Spontaneous
  Country: IT (occurrence: None)
  Receive Date: 20130103
  Receipt Date: 20130103
  Transmission Date: 20140127
  Serious: Yes (Other)
  Sender: FDA-Public Use
  Company Number: IT-MACLEODS PHARMA-000047

PATIENT
  Age: 58 Year
  Sex: Female

DRUGS (4)
  1. PANTOPRAZOLE [Suspect]
     Indication: GASTROOESOPHAGEAL REFLUX DISEASE
  2. OMEPRAZOLE [Suspect]
     Indication: GASTROOESOPHAGEAL REFLUX DISEASE
  3. FUROSEMIDE (FUROSEMIDE) [Concomitant]
  4. BISOPROLOL(BISOPROLOL) [Concomitant]

REACTIONS (4)
  - Hypoparathyroidism [None]
  - Hypomagnesaemia [None]
  - Tetany [None]
  - Blood calcium decreased [None]
